FAERS Safety Report 12055992 (Version 1)
Quarter: 2016Q1

REPORT INFORMATION
  Report Type: Spontaneous
  Country: FR (occurrence: FR)
  Receive Date: 20160209
  Receipt Date: 20160209
  Transmission Date: 20160526
  Serious: No
  Sender: FDA-Public Use
  Company Number: FR-PHOTOCURE ASA-HX-PM-FR-151000004

PATIENT

DRUGS (1)
  1. CYSVIEW [Suspect]
     Active Substance: HEXAMINOLEVULINATE HYDROCHLORIDE
     Indication: DIAGNOSTIC PROCEDURE

REACTIONS (2)
  - No adverse event [None]
  - Product preparation error [None]
